FAERS Safety Report 6653710-X (Version None)
Quarter: 2010Q1

REPORT INFORMATION
  Report Type: 
  Country: None (occurrence: None)
  Receive Date: 20100326
  Receipt Date: 20100315
  Transmission Date: 20100710
  Serious: Yes (Hospitalization, Other)
  Sender: FDA-Public Use
  Company Number: CI-BRISTOL-MYERS SQUIBB COMPANY-15019854

PATIENT
  Age: 33 Year
  Sex: Male
  Weight: 68 kg

DRUGS (9)
  1. EFAVIRENZ [Suspect]
     Indication: HIV INFECTION
     Dates: start: 20020101
  2. STAVUDINE [Suspect]
     Indication: HIV INFECTION
     Dates: start: 19991001
  3. DIDANOSINE [Suspect]
     Indication: HIV INFECTION
     Dates: start: 19981001
  4. ZIDOVUDINE [Suspect]
     Indication: HIV INFECTION
     Dates: start: 19981001
  5. SAQUINAVIR [Suspect]
     Indication: HIV INFECTION
     Dates: start: 19981201
  6. LAMIVUDINE [Suspect]
     Indication: HIV INFECTION
     Dosage: ALSO GIVEN FROM JAN-2002 AND FROM MAR-2003
     Dates: start: 19991001
  7. NELFINAVIR [Suspect]
     Indication: HIV INFECTION
     Dates: start: 19991001
  8. TENOFOVIR [Suspect]
     Indication: HIV INFECTION
     Dates: start: 20030301
  9. LOPINAVIR AND RITONAVIR [Suspect]
     Indication: HIV INFECTION
     Dates: start: 20030301

REACTIONS (3)
  - HYPERTRIGLYCERIDAEMIA [None]
  - OSTEONECROSIS [None]
  - VIROLOGIC FAILURE [None]
